FAERS Safety Report 4434181-0 (Version None)
Quarter: 2004Q3

REPORT INFORMATION
  Report Type: 
  Country: None (occurrence: None)
  Receive Date: 20040825
  Receipt Date: 20040809
  Transmission Date: 20050211
  Serious: Yes (Other)
  Sender: FDA-Public Use
  Company Number: L04-GRC-03752-01

PATIENT
  Age: 12 Year
  Sex: Male

DRUGS (1)
  1. CARBAMAZEPINE [Suspect]
     Indication: EPILEPSY

REACTIONS (2)
  - COMA [None]
  - DRUG TOXICITY [None]
